FAERS Safety Report 20514699 (Version 2)
Quarter: 2022Q1

REPORT INFORMATION
  Report Type: Spontaneous
  Country: AT (occurrence: AT)
  Receive Date: 20220224
  Receipt Date: 20220322
  Transmission Date: 20220423
  Serious: Yes (Death, Hospitalization, Disabling, Other)
  Sender: FDA-Public Use
  Company Number: AT-NOVARTISPH-NVSC2022AT040073

PATIENT
  Sex: Female

DRUGS (14)
  1. RISPERIDONE [Suspect]
     Active Substance: RISPERIDONE
     Indication: Psychotic disorder
     Dosage: 6 MG, QD
     Route: 065
     Dates: start: 2000, end: 20010116
  2. RISPERIDONE [Suspect]
     Active Substance: RISPERIDONE
     Dosage: UNK
     Route: 065
     Dates: start: 20010117, end: 2004
  3. HALOPERIDOL [Suspect]
     Active Substance: HALOPERIDOL
     Indication: Product used for unknown indication
     Dosage: UNK
     Route: 065
  4. TIAPRIDE HYDROCHLORIDE [Suspect]
     Active Substance: TIAPRIDE HYDROCHLORIDE
     Indication: Product used for unknown indication
     Dosage: 200 MG AS ADD-ON MEDICATION
     Route: 065
     Dates: start: 20040505, end: 2008
  5. SERTINDOLE [Suspect]
     Active Substance: SERTINDOLE
     Indication: Product used for unknown indication
     Dosage: 4 MG
     Route: 048
  6. SERTINDOLE [Suspect]
     Active Substance: SERTINDOLE
     Dosage: 8 MG
     Route: 048
     Dates: end: 20071010
  7. SERTINDOLE [Suspect]
     Active Substance: SERTINDOLE
     Dosage: 16 MG
     Route: 048
     Dates: start: 2004, end: 2008
  8. SERTINDOLE [Suspect]
     Active Substance: SERTINDOLE
     Indication: Product used for unknown indication
     Dosage: 8 MG
     Route: 048
     Dates: start: 20040402
  9. RISPERDAL [Suspect]
     Active Substance: RISPERIDONE
     Indication: Product used for unknown indication
     Dosage: UNK
     Route: 065
     Dates: start: 2000, end: 2004
  10. CLORAZEPATE DIPOTASSIUM [Suspect]
     Active Substance: CLORAZEPATE DIPOTASSIUM
     Indication: Product used for unknown indication
     Dosage: 30 MG, QD
     Route: 065
     Dates: start: 2004, end: 2008
  11. CETYLPYRIDINIUM CHLORIDE [Suspect]
     Active Substance: CETYLPYRIDINIUM CHLORIDE
     Indication: Product used for unknown indication
     Dosage: UNK
     Route: 065
  12. DIHYDROERGOTAMIN [Concomitant]
     Indication: Migraine
     Dosage: 2.5 MG
     Route: 065
  13. EUTHYROX [Concomitant]
     Active Substance: LEVOTHYROXINE SODIUM
     Indication: Hypothyroidism
     Dosage: 75 UG, QD
     Route: 065
  14. ZELDOX [Concomitant]
     Active Substance: ZIPRASIDONE
     Indication: Schizophrenia
     Dosage: 80 MG
     Route: 065
     Dates: end: 2004

REACTIONS (12)
  - Condition aggravated [Fatal]
  - Movement disorder [Not Recovered/Not Resolved]
  - Weight increased [Not Recovered/Not Resolved]
  - Chorea [Unknown]
  - Incontinence [Unknown]
  - Dyskinesia [Not Recovered/Not Resolved]
  - Gait inability [Unknown]
  - Weight decreased [Unknown]
  - Dementia [Not Recovered/Not Resolved]
  - Choking [Unknown]
  - Pneumonia aspiration [Unknown]
  - Speech disorder [Not Recovered/Not Resolved]

NARRATIVE: CASE EVENT DATE: 20060101
